FAERS Safety Report 5451447-6 (Version None)
Quarter: 2007Q3

REPORT INFORMATION
  Report Type: 
  Country: None (occurrence: None)
  Receive Date: 20070913
  Receipt Date: 20070910
  Transmission Date: 20080115
  Serious: Yes (Death, Other)
  Sender: FDA-Public Use
  Company Number: US-BRISTOL-MYERS SQUIBB COMPANY-13904487

PATIENT

DRUGS (5)
  1. IFOSFAMIDE [Suspect]
  2. ETOPOSIDE [Suspect]
  3. DOXORUBICIN HCL [Suspect]
  4. CYCLOPHOSPHAMIDE [Suspect]
  5. VINCRISTINE SULFATE [Suspect]

REACTIONS (2)
  - DEATH [None]
  - NEOPLASM MALIGNANT [None]
